FAERS Safety Report 17828226 (Version 1)
Quarter: 2020Q2

REPORT INFORMATION
  Report Type: Spontaneous
  Country: US (occurrence: US)
  Receive Date: 20200527
  Receipt Date: 20200527
  Transmission Date: 20200714
  Serious: No
  Sender: FDA-Public Use
  Company Number: US-TORRENT-00010240

PATIENT

DRUGS (1)
  1. DULOXETINE HYDROCHLORIDE DELAYED-RELEASE CAPSULES [Suspect]
     Active Substance: DULOXETINE HYDROCHLORIDE
     Indication: PRODUCT USED FOR UNKNOWN INDICATION
     Dates: start: 202005

REACTIONS (9)
  - Confusional state [Unknown]
  - Burning sensation [Unknown]
  - Paraesthesia [Unknown]
  - Withdrawal syndrome [Unknown]
  - Nausea [Unknown]
  - Headache [Unknown]
  - Agitation [Unknown]
  - Depression [Unknown]
  - Product quality issue [Unknown]

NARRATIVE: CASE EVENT DATE: 202005
